FAERS Safety Report 7414776 (Version 8)
Quarter: 2016Q1

REPORT INFORMATION
  Report Type: Report from Study
  Country: JP (occurrence: JP)
  Receive Date: 20100609
  Receipt Date: 20160217
  Transmission Date: 20160526
  Serious: Yes (Hospitalization)
  Sender: FDA-Public Use
  Company Number: JP-TEVA-236088ISR

PATIENT
  Age: 61 Year
  Sex: Male
  Weight: 59.2 kg

DRUGS (9)
  1. TAKEPRON [Concomitant]
     Active Substance: LANSOPRAZOLE
     Indication: GASTRIC ULCER
     Dosage: 15 MILLIGRAM DAILY;
     Route: 048
  2. ANTIXIB [Suspect]
     Active Substance: AXITINIB
     Indication: GASTRIC CANCER
     Dosage: 10 MILLIGRAM DAILY;
     Route: 048
     Dates: start: 20100410, end: 20100507
  3. TELEMINSOFT [Concomitant]
     Active Substance: BISACODYL
     Indication: CONSTIPATION
     Route: 054
  4. THYRADIN-S [Concomitant]
     Active Substance: LEVOTHYROXINE
     Indication: HYPOTHYROIDISM
     Dosage: 25 MICROGRAM DAILY;
     Route: 048
     Dates: start: 20100419
  5. CAPECITABINE. [Suspect]
     Active Substance: CAPECITABINE
     Indication: GASTRIC CANCER
     Dosage: 2000 MG/M2 DAILY; DAY 1 TO 14, EVERY 21 DAYS.
     Route: 048
     Dates: start: 20100413, end: 20100426
  6. PLATOSIN [Suspect]
     Active Substance: CISPLATIN
     Dates: start: 20100510
  7. PLATOSIN [Suspect]
     Active Substance: CISPLATIN
     Indication: GASTRIC CANCER
     Dosage: 135 MILLIGRAM DAILY;
     Route: 042
     Dates: start: 20100413, end: 20100413
  8. ANTIXIB [Suspect]
     Active Substance: AXITINIB
     Dates: start: 20100510
  9. CAPECITABINE. [Suspect]
     Active Substance: CAPECITABINE
     Dates: start: 20100510

REACTIONS (4)
  - Drug-induced liver injury [None]
  - Peritonitis bacterial [None]
  - Disease progression [None]
  - Gastrointestinal perforation [Not Recovered/Not Resolved]

NARRATIVE: CASE EVENT DATE: 20100510
